FAERS Safety Report 7183836-6 (Version None)
Quarter: 2010Q4

REPORT INFORMATION
  Report Type: 
  Country: None (occurrence: None)
  Receive Date: 20101220
  Receipt Date: 20101220
  Transmission Date: 20110411
  Serious: Yes (Hospitalization)
  Sender: FDA-Public Use
  Company Number: None

PATIENT
  Age: 65 Year
  Sex: Female
  Weight: 63.5036 kg

DRUGS (1)
  1. AMLODIPINE [Suspect]
     Indication: HYPERTENSION
     Dosage: 10MG QD PO   3-4 DAYS
     Route: 048
     Dates: start: 20101213, end: 20101216

REACTIONS (2)
  - HEART RATE INCREASED [None]
  - PRODUCT QUALITY ISSUE [None]
